FAERS Safety Report 17830369 (Version 2)
Quarter: 2020Q3

REPORT INFORMATION
  Report Type: Spontaneous
  Country: US (occurrence: US)
  Receive Date: 20200527
  Receipt Date: 20200924
  Transmission Date: 20201102
  Serious: No
  Sender: FDA-Public Use
  Company Number: US-ASTRAZENECA-2020SE65783

PATIENT
  Age: 74 Year
  Sex: Female
  Weight: 74.84 kg

DRUGS (6)
  1. MOVANTIK [Suspect]
     Active Substance: NALOXEGOL OXALATE
     Dosage: 12.5 MG TABLET AND HALF OF A 12.5 MG TABLET
     Route: 048
     Dates: start: 20200514
  2. MIRALAX [Concomitant]
     Active Substance: POLYETHYLENE GLYCOL 3350
  3. MOVANTIK [Suspect]
     Active Substance: NALOXEGOL OXALATE
     Indication: CONSTIPATION
     Dosage: 12.5 MG
     Route: 048
     Dates: start: 20200428
  4. MOVANTIK [Suspect]
     Active Substance: NALOXEGOL OXALATE
     Dosage: 25 MG
     Route: 048
     Dates: start: 20200505
  5. MOVANTIK [Suspect]
     Active Substance: NALOXEGOL OXALATE
     Dosage: 25 MG
     Route: 048
     Dates: start: 20200515
  6. MOVANTIK [Suspect]
     Active Substance: NALOXEGOL OXALATE
     Dosage: 12.5 MG
     Route: 048

REACTIONS (8)
  - Muscle spasms [Not Recovered/Not Resolved]
  - Hyperhidrosis [Unknown]
  - Headache [Unknown]
  - Product dose omission issue [Unknown]
  - Abdominal pain upper [Unknown]
  - Diarrhoea [Unknown]
  - Malaise [Unknown]
  - Constipation [Unknown]

NARRATIVE: CASE EVENT DATE: 20200509
